FAERS Safety Report 8573882-X (Version None)
Quarter: 2012Q3

REPORT INFORMATION
  Report Type: 
  Country: None (occurrence: None)
  Receive Date: 20120806
  Receipt Date: 20120313
  Transmission Date: 20120928
  Serious: No
  Sender: FDA-Public Use
  Company Number: US-GLAXOSMITHKLINE-A0969665A

PATIENT
  Sex: Female

DRUGS (7)
  1. THYROID MEDICATION [Concomitant]
  2. ZITHROMAX [Concomitant]
  3. FLUTICASONE PROPIONATE [Suspect]
     Indication: ASTHMA
     Dosage: 2PUFF TWICE PER DAY
     Route: 055
     Dates: start: 20120201
  4. SINGULAIR [Concomitant]
  5. ASTELIN [Concomitant]
  6. PROAIR HFA [Concomitant]
  7. INSULIN [Concomitant]

REACTIONS (1)
  - DYSPHONIA [None]
